FAERS Safety Report 5367187-8 (Version None)
Quarter: 2007Q2

REPORT INFORMATION
  Report Type: 
  Country: None (occurrence: None)
  Receive Date: 20070622
  Receipt Date: 20070612
  Transmission Date: 20071010
  Serious: Yes (Death)
  Sender: FDA-Public Use
  Company Number: NL-ROCHE-501956

PATIENT
  Age: 63 Year
  Sex: Female

DRUGS (2)
  1. XELODA [Suspect]
     Dosage: FOR 14 DAYS
     Route: 048
     Dates: start: 20070504, end: 20070516
  2. OXALIPLATIN [Suspect]
     Route: 042
     Dates: start: 20070504, end: 20070504

REACTIONS (3)
  - DEATH [None]
  - MUCOSAL INFLAMMATION [None]
  - SEPSIS [None]
